FAERS Safety Report 5609053-6 (Version None)
Quarter: 2008Q1

REPORT INFORMATION
  Report Type: 
  Country: None (occurrence: None)
  Receive Date: 20080111
  Receipt Date: 20070514
  Transmission Date: 20080703
  Serious: Yes (Other)
  Sender: FDA-Public Use
  Company Number: HQWYE217515MAY07

PATIENT
  Age: 65 Year
  Sex: Female

DRUGS (10)
  1. PREMPRO [Suspect]
  2. ACTIVELLA [Suspect]
  3. ESTRACE [Suspect]
  4. ESTRATAB [Suspect]
  5. ESTRATAB (ESTROGENS ESTERIFIED/METHYLTESTOSTERONE, ) [Suspect]
  6. MEDROXYPROGESTERONE [Suspect]
  7. MENEST [Suspect]
  8. OGEN [Suspect]
  9. PREMARIN [Suspect]
  10. PROVERA [Suspect]

REACTIONS (1)
  - BREAST CANCER [None]
